FAERS Safety Report 24223230 (Version 1)
Quarter: 2024Q3

REPORT INFORMATION
  Report Type: Spontaneous
  Country: US (occurrence: US)
  Receive Date: 20240819
  Receipt Date: 20240819
  Transmission Date: 20241016
  Serious: Yes (Hospitalization)
  Sender: SANOFI AVENTIS
  Company Number: US-SA-2024SA170296

PATIENT
  Age: 57 Year
  Sex: Male

DRUGS (1)
  1. DUPIXENT [Suspect]
     Active Substance: DUPILUMAB
     Indication: Dermatitis atopic
     Dosage: 300 MG, QOW
     Route: 058
     Dates: end: 202407

REACTIONS (11)
  - Renal disorder [Unknown]
  - Hypervolaemia [Unknown]
  - Cardiac disorder [Unknown]
  - Heart rate decreased [Unknown]
  - Dyspnoea [Unknown]
  - Diarrhoea [Unknown]
  - Pain [Unknown]
  - Acne [Unknown]
  - Fatigue [Unknown]
  - Rotator cuff syndrome [Unknown]
  - Gait disturbance [Unknown]
